FAERS Safety Report 8298343-7 (Version None)
Quarter: 2012Q2

REPORT INFORMATION
  Report Type: 
  Country: None (occurrence: None)
  Receive Date: 20120419
  Receipt Date: 20120410
  Transmission Date: 20120825
  Serious: Yes (Other)
  Sender: FDA-Public Use
  Company Number: US-SANOFI-AVENTIS-2012SA011660

PATIENT
  Age: 79 Year
  Sex: Female
  Weight: 118.18 kg

DRUGS (18)
  1. ALISKIREN [Concomitant]
  2. CALCIUM/VITAMIN D [Concomitant]
  3. RAMIPRIL [Concomitant]
  4. MULTI-VITAMINS [Concomitant]
  5. SOLOSTAR [Suspect]
     Indication: TYPE 2 DIABETES MELLITUS
  6. ALL OTHER THERAPEUTIC PRODUCTS [Concomitant]
  7. AMLODIPINE [Concomitant]
  8. ALLOPURINOL [Concomitant]
  9. LEVOXYL [Concomitant]
  10. LUMIGAN [Concomitant]
  11. LANTUS [Suspect]
     Indication: TYPE 2 DIABETES MELLITUS
     Dosage: DOSE:28 UNIT(S)
     Route: 058
  12. LANTUS [Suspect]
     Dosage: DOSE:32 UNIT(S)
     Route: 058
     Dates: start: 20110101
  13. HYDROCHLOROTHIAZIDE [Concomitant]
  14. VITAMIN B-12 [Concomitant]
  15. OPHTHALMOLOGICALS [Concomitant]
     Indication: EYE DISORDER
  16. JANUVIA [Concomitant]
  17. ASPIRIN [Concomitant]
  18. LANTUS [Suspect]
     Dosage: DOSE:22 UNIT(S)
     Route: 058

REACTIONS (2)
  - GLAUCOMA [None]
  - BLOOD GLUCOSE INCREASED [None]
